FAERS Safety Report 6241928-X (Version None)
Quarter: 2009Q2

REPORT INFORMATION
  Report Type: 
  Country: None (occurrence: None)
  Receive Date: 20090622
  Receipt Date: 20090617
  Transmission Date: 20091009
  Serious: Yes (Death, Other)
  Sender: FDA-Public Use
  Company Number: 2009SP013269

PATIENT
  Age: 55 Year
  Sex: Female

DRUGS (1)
  1. PEG-INTRON [Suspect]
     Indication: HEPATITIS C
     Dates: start: 20081201, end: 20090615

REACTIONS (4)
  - MYOCARDIAL INFARCTION [None]
  - PANCREATIC DISORDER [None]
  - PNEUMONIA [None]
  - RENAL FAILURE [None]
